FAERS Safety Report 8006854-4 (Version None)
Quarter: 2011Q4

REPORT INFORMATION
  Report Type: 
  Country: None (occurrence: None)
  Receive Date: 20111227
  Receipt Date: 20111219
  Transmission Date: 20120403
  Serious: Yes (Other)
  Sender: FDA-Public Use
  Company Number: DE-JNJFOC-20111204277

PATIENT
  Age: 61 Year
  Sex: Female

DRUGS (3)
  1. LEVOFLOXACIN [Suspect]
     Indication: PHARYNGITIS
     Route: 048
     Dates: start: 20111130, end: 20111202
  2. ACTIVELLE (ESTRADIOL AND NORETHINDRONE) [Concomitant]
     Route: 065
  3. LEVOFLOXACIN [Suspect]
     Indication: TRACHEOBRONCHITIS
     Route: 048
     Dates: start: 20111130, end: 20111202

REACTIONS (1)
  - DIARRHOEA HAEMORRHAGIC [None]
